FAERS Safety Report 4401502-4 (Version None)
Quarter: 2004Q3

REPORT INFORMATION
  Report Type: 
  Country: None (occurrence: None)
  Receive Date: 20040719
  Receipt Date: 20040712
  Transmission Date: 20050211
  Serious: Yes (Hospitalization)
  Sender: FDA-Public Use
  Company Number: 200415240US

PATIENT
  Age: 15 Year
  Sex: Male

DRUGS (4)
  1. LANTUS [Suspect]
     Indication: DIABETES MELLITUS
     Dosage: DOSE UNIT: UNITS
  2. NOVOLOG [Concomitant]
     Dosage: DOSE: UNK
  3. NPH INSULIN [Concomitant]
     Dosage: DOSE: UNK
  4. HUMALOG [Concomitant]
     Dosage: DOSE: UNK

REACTIONS (3)
  - AMNESIA [None]
  - BLOOD GLUCOSE DECREASED [None]
  - CONVULSION [None]
